FAERS Safety Report 10422969 (Version 1)
Quarter: 2014Q3

REPORT INFORMATION
  Report Type: Spontaneous
  Country: US (occurrence: US)
  Receive Date: 20140902
  Receipt Date: 20140902
  Transmission Date: 20150326
  Serious: No
  Sender: FDA-Public Use
  Company Number: US-ASTRAZENECA-2014SE63173

PATIENT
  Age: 56 Year
  Sex: Male

DRUGS (1)
  1. PULMICORT FLEXHALER [Suspect]
     Active Substance: BUDESONIDE
     Dosage: 1 TO 2 PUFFS BID, DAILY
     Route: 055
     Dates: start: 201401

REACTIONS (2)
  - Asthma [Unknown]
  - Off label use [Unknown]

NARRATIVE: CASE EVENT DATE: 201401
